FAERS Safety Report 13877996 (Version 3)
Quarter: 2017Q3

REPORT INFORMATION
  Report Type: Report from Study
  Country: CO (occurrence: CO)
  Receive Date: 20170817
  Receipt Date: 20170925
  Transmission Date: 20171127
  Serious: Yes (Other)
  Sender: FDA-Public Use
  Company Number: CO-REGENERON PHARMACEUTICALS, INC.-2017-20372

PATIENT

DRUGS (1)
  1. EYLEA [Suspect]
     Active Substance: AFLIBERCEPT
     Indication: AGE-RELATED MACULAR DEGENERATION
     Dosage: 2 MG, Q1MON. TOTAL NUMBER OF DOSES RECEIVED WAS NOT PROVIDED.
     Dates: start: 20150129, end: 20170811

REACTIONS (2)
  - Drug ineffective [Not Recovered/Not Resolved]
  - Age-related macular degeneration [Unknown]

NARRATIVE: CASE EVENT DATE: 20170717
